FAERS Safety Report 11177608 (Version 1)
Quarter: 2015Q2

REPORT INFORMATION
  Report Type: Spontaneous
  Country: US (occurrence: None)
  Receive Date: 20150608
  Receipt Date: 20150608
  Transmission Date: 20150821
  Serious: No
  Sender: FDA-Public Use
  Company Number: None

PATIENT
  Age: 62 Year
  Sex: Female
  Weight: 90.72 kg

DRUGS (7)
  1. SIMVASTATIN. [Concomitant]
     Active Substance: SIMVASTATIN
  2. FARXIGA [Suspect]
     Active Substance: DAPAGLIFLOZIN PROPANEDIOL
     Indication: TYPE 2 DIABETES MELLITUS
     Dosage: 1 PILL IN MORNING ONCE DAILY TAKEN BY MOUTH
     Route: 048
     Dates: start: 20150516, end: 20150520
  3. NIACIN SUPPLEMENT [Concomitant]
  4. METFORMIN [Concomitant]
     Active Substance: METFORMIN HYDROCHLORIDE
  5. VITAMIN [Concomitant]
     Active Substance: VITAMINS
  6. LOSSARTAN [Concomitant]
  7. BIOTIN [Concomitant]
     Active Substance: BIOTIN

REACTIONS (4)
  - Vulvovaginal discomfort [None]
  - Vulvovaginal burning sensation [None]
  - Vaginal disorder [None]
  - Vulvovaginal erythema [None]

NARRATIVE: CASE EVENT DATE: 20150522
